FAERS Safety Report 23317969 (Version 2)
Quarter: 2023Q4

REPORT INFORMATION
  Report Type: Spontaneous
  Country: BR (occurrence: BR)
  Receive Date: 20231219
  Receipt Date: 20231221
  Transmission Date: 20240110
  Serious: Yes (Hospitalization, Other)
  Sender: FDA-Public Use
  Company Number: BR-BIOGEN-2023BI01240609

PATIENT
  Sex: Female
  Weight: 70 kg

DRUGS (2)
  1. TYSABRI [Suspect]
     Active Substance: NATALIZUMAB
     Indication: Multiple sclerosis
     Dosage: 20MG/ML
     Route: 050
     Dates: start: 20161214, end: 202210
  2. TYSABRI [Suspect]
     Active Substance: NATALIZUMAB
     Route: 050

REACTIONS (3)
  - COVID-19 [Unknown]
  - Latent tuberculosis [Unknown]
  - Overweight [Unknown]
